FAERS Safety Report 17134490 (Version 3)
Quarter: 2020Q2

REPORT INFORMATION
  Report Type: Spontaneous
  Country: US (occurrence: US)
  Receive Date: 20191210
  Receipt Date: 20200429
  Transmission Date: 20200713
  Serious: Yes (Other)
  Sender: FDA-Public Use
  Company Number: US-PFIZER INC-2019526368

PATIENT
  Age: 56 Year
  Sex: Female
  Weight: 72.5 kg

DRUGS (2)
  1. IBRANCE [Suspect]
     Active Substance: PALBOCICLIB
     Indication: BREAST CANCER METASTATIC
     Dosage: 100 MG, CYCLIC (1 CAPSULE DAILY FOR 21 DAYS, THEN 7 DAYS OFF)
     Route: 048
     Dates: start: 20190117
  2. FULVESTRANT. [Suspect]
     Active Substance: FULVESTRANT
     Dosage: UNK

REACTIONS (7)
  - Dental caries [Unknown]
  - Fatigue [Unknown]
  - Gingival disorder [Not Recovered/Not Resolved]
  - Tooth fracture [Not Recovered/Not Resolved]
  - Loose tooth [Unknown]
  - Alopecia [Unknown]
  - Tooth disorder [Not Recovered/Not Resolved]

NARRATIVE: CASE EVENT DATE: 201901
